FAERS Safety Report 8432383-X (Version None)
Quarter: 2012Q2

REPORT INFORMATION
  Report Type: 
  Country: None (occurrence: None)
  Receive Date: 20120613
  Receipt Date: 20120603
  Transmission Date: 20120825
  Serious: No
  Sender: FDA-Public Use
  Company Number: MX-NOVOPROD-352149

PATIENT
  Age: 28 Year
  Sex: Female
  Weight: 102 kg

DRUGS (2)
  1. VICTOZA [Suspect]
     Dosage: 3 MG, UNK
     Route: 058
  2. VICTOZA [Suspect]
     Indication: OBESITY
     Dosage: 0.6 MG, QD
     Dates: start: 20110726

REACTIONS (1)
  - HYPOTHYROIDISM [None]
